FAERS Safety Report 20265662 (Version 1)
Quarter: 2021Q4

REPORT INFORMATION
  Report Type: Spontaneous
  Country: US (occurrence: None)
  Receive Date: 20211231
  Receipt Date: 20211231
  Transmission Date: 20220303
  Serious: Yes (Death)
  Sender: FDA-Public Use
  Company Number: None

PATIENT
  Age: 44 Year
  Sex: Female
  Weight: 117.9 kg

DRUGS (2)
  1. REGEN-COV [Suspect]
     Active Substance: CASIRIVIMAB\IMDEVIMAB
     Indication: Coronavirus test positive
     Dosage: OTHER FREQUENCY : WEEKLY;?
     Route: 042
     Dates: start: 20211230, end: 20211230
  2. FERAHEME [Suspect]
     Active Substance: FERUMOXYTOL NON-STOICHIOMETRIC MAGNETITE
     Indication: Iron deficiency anaemia
     Dosage: OTHER FREQUENCY : 1 OF 2 DOSES;?
     Route: 042
     Dates: start: 20211230

REACTIONS (2)
  - Chest pain [None]
  - Death [None]

NARRATIVE: CASE EVENT DATE: 20211230
